FAERS Safety Report 22075770 (Version 1)
Quarter: 2023Q1

REPORT INFORMATION
  Report Type: Other
  Country: None (occurrence: US)
  Receive Date: 20230308
  Receipt Date: 20230308
  Transmission Date: 20230417
  Serious: Yes (Death)
  Sender: FDA-Public Use
  Company Number: US-B.Braun Medical Inc.-2138851

PATIENT
  Age: 52 Year
  Sex: Female

DRUGS (5)
  1. POTASSIUM CHLORIDE [Suspect]
     Active Substance: POTASSIUM CHLORIDE
  2. AMLODIPINE [Suspect]
     Active Substance: AMLODIPINE BESYLATE
  3. GABAPENTIN [Suspect]
     Active Substance: GABAPENTIN
  4. MELOXICAM [Suspect]
     Active Substance: MELOXICAM
  5. METOPROLOL [Suspect]
     Active Substance: METOPROLOL

REACTIONS (7)
  - Hypotension [Fatal]
  - Tachycardia [Fatal]
  - Bradycardia [Fatal]
  - Atrioventricular block [Fatal]
  - Coma [Fatal]
  - Depressed level of consciousness [Fatal]
  - Metabolic acidosis [Fatal]
